FAERS Safety Report 9729484 (Version 2)
Quarter: 2013Q4

REPORT INFORMATION
  Report Type: Spontaneous
  Country: US (occurrence: US)
  Receive Date: 20131204
  Receipt Date: 20131204
  Transmission Date: 20140711
  Serious: No
  Sender: FDA-Public Use
  Company Number: US-GILEAD-2009-0021613

PATIENT
  Age: 50 Year
  Sex: Female
  Weight: 38.56 kg

DRUGS (14)
  1. LETAIRIS [Suspect]
     Indication: PULMONARY ARTERIAL HYPERTENSION
     Route: 048
     Dates: start: 200904
  2. LETAIRIS [Suspect]
     Route: 048
     Dates: start: 20080226, end: 200904
  3. REVATIO [Concomitant]
  4. VENTAVIS [Concomitant]
  5. VASOTEC [Concomitant]
  6. FUROSEMIDE [Concomitant]
  7. OXYGEN [Concomitant]
  8. IPRATR-ALBUTEROL [Concomitant]
  9. COMBIVENT [Concomitant]
  10. PULMICORT [Concomitant]
  11. DRAMAMINE [Concomitant]
  12. CEFUROXIME AXETIL [Concomitant]
  13. PREVACID [Concomitant]
  14. XANAX [Concomitant]

REACTIONS (1)
  - Dyspnoea [Unknown]
